FAERS Safety Report 8942113 (Version 2)
Quarter: 2013Q1

REPORT INFORMATION
  Report Type: Spontaneous
  Country: FR (occurrence: FR)
  Receive Date: 20121130
  Receipt Date: 20130121
  Transmission Date: 20140127
  Serious: Yes (Death, Hospitalization)
  Sender: FDA-Public Use
  Company Number: FR-GLAXOSMITHKLINE-B0846512A

PATIENT
  Age: 91 Year
  Sex: Male
  Weight: 75 kg

DRUGS (6)
  1. ARIXTRA [Suspect]
     Indication: ACUTE CORONARY SYNDROME
     Dosage: 7.5MG PER DAY
     Route: 065
     Dates: start: 20121007, end: 20121016
  2. KARDEGIC [Concomitant]
     Indication: ACUTE CORONARY SYNDROME
     Dosage: 160MG PER DAY
     Route: 048
     Dates: start: 20121008, end: 20121017
  3. AUGMENTIN [Concomitant]
  4. LASILIX [Concomitant]
  5. INEXIUM [Concomitant]
  6. NITRIDERM [Concomitant]

REACTIONS (5)
  - Intra-abdominal haematoma [Fatal]
  - General physical health deterioration [Unknown]
  - Abdominal pain [Unknown]
  - Hypotension [Unknown]
  - Hypovolaemic shock [Unknown]
